FAERS Safety Report 24880805 (Version 1)
Quarter: 2025Q1

REPORT INFORMATION
  Report Type: Spontaneous
  Country: MX (occurrence: MX)
  Receive Date: 20250123
  Receipt Date: 20250123
  Transmission Date: 20250409
  Serious: Yes (Hospitalization)
  Sender: JOHNSON AND JOHNSON
  Company Number: MX-JNJFOC-20250160365

PATIENT
  Age: 25 Year
  Sex: Male
  Weight: 75.7 kg

DRUGS (9)
  1. SPRAVATO [Suspect]
     Active Substance: ESKETAMINE
     Indication: Depression
     Route: 045
  2. SPRAVATO [Suspect]
     Active Substance: ESKETAMINE
     Indication: Suicidal ideation
  3. LAMOTRIGINE [Concomitant]
     Active Substance: LAMOTRIGINE
  4. VORTIOXETINE [Concomitant]
     Active Substance: VORTIOXETINE
     Dosage: EVERY MORNING
  5. LITHIUM CARBONATE [Concomitant]
     Active Substance: LITHIUM CARBONATE
     Dosage: AT BEDTIME
  6. RISPERIDONE [Concomitant]
     Active Substance: RISPERIDONE
  7. CLONAZEPAM [Concomitant]
     Active Substance: CLONAZEPAM
  8. QUETIAPINE [Concomitant]
     Active Substance: QUETIAPINE
     Indication: Insomnia
  9. LORAZEPAM [Concomitant]
     Active Substance: LORAZEPAM
     Indication: Insomnia

REACTIONS (2)
  - Suicidal ideation [Recovered/Resolved]
  - Depressive symptom [Recovering/Resolving]
